FAERS Safety Report 9061499 (Version 2)
Quarter: 2013Q1

REPORT INFORMATION
  Report Type: Spontaneous
  Country: US (occurrence: US)
  Receive Date: 20130204
  Receipt Date: 20130226
  Transmission Date: 20140127
  Serious: Yes (Other)
  Sender: FDA-Public Use
  Company Number: US-SANOFI-AVENTIS-2013SA007018

PATIENT
  Age: 76 Year
  Sex: Male

DRUGS (3)
  1. CLOPIDOGREL BISULFATE [Suspect]
     Indication: PRODUCT USED FOR UNKNOWN INDICATION
     Route: 065
  2. SIMVASTATIN [Concomitant]
  3. TAMSULOSIN [Concomitant]

REACTIONS (4)
  - Thrombosis [Recovered/Resolved]
  - Fibrin D dimer increased [Recovered/Resolved]
  - Biopsy skin abnormal [Recovered/Resolved]
  - Gangrene [Recovered/Resolved]
